FAERS Safety Report 26120304 (Version 1)
Quarter: 2025Q4

REPORT INFORMATION
  Report Type: Spontaneous
  Country: CN (occurrence: CN)
  Receive Date: 20251204
  Receipt Date: 20251204
  Transmission Date: 20260118
  Serious: Yes (Disabling, Other)
  Sender: BAXTER
  Company Number: None

PATIENT
  Age: 41 Year
  Sex: Female
  Weight: 52.1 kg

DRUGS (7)
  1. CYCLOPHOSPHAMIDE [Suspect]
     Active Substance: CYCLOPHOSPHAMIDE
     Indication: Diffuse large B-cell lymphoma
     Dosage: 1.1 G, QD
     Route: 041
     Dates: start: 20251111, end: 20251111
  2. SODIUM CHLORIDE [Suspect]
     Active Substance: SODIUM CHLORIDE
     Dosage: 100 ML, QD
     Route: 041
     Dates: start: 20251107, end: 20251110
  3. ETOPOSIDE [Suspect]
     Active Substance: ETOPOSIDE
     Indication: Diffuse large B-cell lymphoma
     Dosage: 80 ML, QD
     Route: 041
     Dates: start: 20251107, end: 20251110
  4. DOXORUBICIN HYDROCHLORIDE [Suspect]
     Active Substance: DOXORUBICIN HYDROCHLORIDE
     Indication: Diffuse large B-cell lymphoma
     Dosage: 15 MG, QD
     Route: 041
     Dates: start: 20251107, end: 20251110
  5. VINCRISTINE SULFATE [Suspect]
     Active Substance: VINCRISTINE SULFATE
     Indication: Diffuse large B-cell lymphoma
     Dosage: 0.5 MG, QD
     Route: 041
     Dates: start: 20251107, end: 20251110
  6. SODIUM CHLORIDE [Suspect]
     Active Substance: SODIUM CHLORIDE
     Indication: Medication dilution
     Dosage: 500 ML, QD WITH ETOPOSIDE, VINCRISTINE, DOXORUBICIN
     Route: 041
     Dates: start: 20251107, end: 20251110
  7. SODIUM CHLORIDE [Suspect]
     Active Substance: SODIUM CHLORIDE
     Dosage: 500 ML, QD WITH CYCLOPHOSPHAMIDE
     Route: 041
     Dates: start: 20251111, end: 20251111

REACTIONS (4)
  - Myelosuppression [Recovering/Resolving]
  - Agranulocytosis [Recovering/Resolving]
  - Platelet count decreased [Recovering/Resolving]
  - White blood cell count decreased [Recovering/Resolving]

NARRATIVE: CASE EVENT DATE: 20251117
